FAERS Safety Report 25905858 (Version 2)
Quarter: 2025Q4

REPORT INFORMATION
  Report Type: Report from Study
  Country: US (occurrence: US)
  Receive Date: 20251010
  Receipt Date: 20251030
  Transmission Date: 20260117
  Serious: Yes (Hospitalization, Other)
  Sender: BAYER HEALTHCARE PHARMACEUTICALS INC.
  Company Number: US-BAYER-2025A131367

PATIENT
  Age: 48 Year
  Sex: Female
  Weight: 72.562 kg

DRUGS (7)
  1. ADEMPAS [Suspect]
     Active Substance: RIOCIGUAT
     Indication: Pulmonary arterial hypertension
     Dosage: UNK
  2. ADEMPAS [Suspect]
     Active Substance: RIOCIGUAT
     Indication: Pulmonary arterial hypertension
     Dosage: 1.5 MG, TID
     Route: 048
     Dates: start: 202003
  3. ADEMPAS [Suspect]
     Active Substance: RIOCIGUAT
     Indication: Pulmonary arterial hypertension
     Dosage: 0.5 MG, TID
     Route: 048
     Dates: start: 202510
  4. VELETRI [Concomitant]
     Active Substance: EPOPROSTENOL
  5. OPSUMIT [Concomitant]
     Active Substance: MACITENTAN
  6. WINREVAIR [Concomitant]
     Active Substance: SOTATERCEPT-CSRK
  7. EPOPROSTENOL [Concomitant]
     Active Substance: EPOPROSTENOL

REACTIONS (3)
  - Abdominal pain [None]
  - Mental status changes [None]
  - Vascular operation [None]

NARRATIVE: CASE EVENT DATE: 20251001
